FAERS Safety Report 5570922-7 (Version None)
Quarter: 2007Q4

REPORT INFORMATION
  Report Type: 
  Country: None (occurrence: None)
  Receive Date: 20071219
  Receipt Date: 20071203
  Transmission Date: 20080405
  Serious: Yes (Death, Hospitalization, Other)
  Sender: FDA-Public Use
  Company Number: 2007100028

PATIENT
  Age: 21 Year
  Sex: Male

DRUGS (11)
  1. SOMA [Suspect]
     Indication: ILL-DEFINED DISORDER
  2. LORTAB [Suspect]
     Indication: BACK PAIN
  3. BENADRYL [Concomitant]
  4. HALDOL [Concomitant]
  5. COGENTIN [Concomitant]
  6. BENTYL [Concomitant]
  7. LIBRIUM [Concomitant]
  8. ATARAX [Concomitant]
  9. PHENERGAN HCL [Concomitant]
  10. NICORETTE [Concomitant]
  11. CELEXA [Suspect]

REACTIONS (13)
  - ACUTE HEPATIC FAILURE [None]
  - ANAEMIA MACROCYTIC [None]
  - CHILLS [None]
  - CREPITATIONS [None]
  - DELIRIUM [None]
  - DISORIENTATION [None]
  - DISTURBANCE IN ATTENTION [None]
  - DYSKINESIA [None]
  - HALLUCINATION, VISUAL [None]
  - HYPERAESTHESIA [None]
  - PYREXIA [None]
  - TREMOR [None]
  - URINARY TRACT INFECTION [None]
